FAERS Safety Report 13351010 (Version 1)
Quarter: 2017Q1

REPORT INFORMATION
  Report Type: Spontaneous
  Country: US (occurrence: US)
  Receive Date: 20170320
  Receipt Date: 20170320
  Transmission Date: 20170429
  Serious: No
  Sender: FDA-Public Use
  Company Number: US-PFIZER INC-2017118194

PATIENT
  Age: 56 Year
  Sex: Female
  Weight: 74.84 kg

DRUGS (1)
  1. IBRANCE [Suspect]
     Active Substance: PALBOCICLIB
     Indication: BREAST CANCER
     Dosage: 125MG; ONE CAPSULE BY MOUTH DAILY FOR 3 WEEKS, OFF 1 WEEK
     Route: 048
     Dates: start: 20170207

REACTIONS (2)
  - Full blood count decreased [Recovering/Resolving]
  - Hot flush [Unknown]

NARRATIVE: CASE EVENT DATE: 201702
